FAERS Safety Report 24000289 (Version 2)
Quarter: 2024Q3

REPORT INFORMATION
  Report Type: Spontaneous
  Country: CA (occurrence: CA)
  Receive Date: 20240621
  Receipt Date: 20240812
  Transmission Date: 20241017
  Serious: Yes (Other)
  Sender: PFIZER
  Company Number: CA-PFIZER INC-202400197656

PATIENT
  Age: 56 Year
  Sex: Female

DRUGS (1)
  1. RUXIENCE [Suspect]
     Active Substance: RITUXIMAB-PVVR
     Indication: Rheumatoid arthritis
     Dosage: 1000 MG, ON DAY 1 AND DAY 15
     Route: 042
     Dates: start: 20240522

REACTIONS (2)
  - Oral surgery [Unknown]
  - Tooth infection [Unknown]

NARRATIVE: CASE EVENT DATE: 20240101
